FAERS Safety Report 12619783 (Version 3)
Quarter: 2016Q4

REPORT INFORMATION
  Report Type: Report from Study
  Country: None (occurrence: BE)
  Receive Date: 20160803
  Receipt Date: 20161007
  Transmission Date: 20170207
  Serious: Yes (Other)
  Sender: FDA-Public Use
  Company Number: BE-ABBVIE-15P-013-1507754-00

PATIENT
  Age: 80 Year
  Sex: Female
  Weight: 45 kg

DRUGS (8)
  1. DUODOPA [Suspect]
     Active Substance: CARBIDOPA\LEVODOPA
     Indication: PARKINSON^S DISEASE
     Dosage: AM=0.5ML; CD=1ML/H FOR 16HRS; ED=0.8ML
     Route: 050
     Dates: start: 20150831, end: 20150901
  2. DUODOPA [Suspect]
     Active Substance: CARBIDOPA\LEVODOPA
     Dosage: AM= 0.5 ML; CD=1.5 ML/H DURING 16 HRS; ED= 1 ML
     Route: 050
     Dates: start: 20160417, end: 20160421
  3. DUODOPA [Suspect]
     Active Substance: CARBIDOPA\LEVODOPA
     Dosage: AM= 0.5 ML; CD=1.5 ML/H DURING 16 HRS; ED= 1 ML
     Route: 050
     Dates: start: 20160421, end: 20160504
  4. DUODOPA [Suspect]
     Active Substance: CARBIDOPA\LEVODOPA
     Dosage: AM= 0.3 ML; CD= 1.5 ML/H DURING 16 HRS; ED= 0.9 ML
     Route: 050
     Dates: start: 20160504, end: 20160726
  5. DUODOPA [Suspect]
     Active Substance: CARBIDOPA\LEVODOPA
     Dosage: AM=0.3ML; CD=1.5ML/H DURING 16HRS AND ED=0.6ML
     Route: 050
     Dates: start: 20160726
  6. DUODOPA [Suspect]
     Active Substance: CARBIDOPA\LEVODOPA
     Dosage: AM=0.3ML; CD=1.4ML/H FOR 16HRS; ED=1ML
     Route: 050
     Dates: start: 20151117, end: 20160129
  7. DUODOPA [Suspect]
     Active Substance: CARBIDOPA\LEVODOPA
     Dosage: DOSES CONTINUOUSLY MONITORED AND ADAPTED.
     Route: 050
     Dates: start: 20150901, end: 20151117
  8. DUODOPA [Suspect]
     Active Substance: CARBIDOPA\LEVODOPA
     Dosage: AM=0.5ML; CD=1.5ML/HR DURING 16HRS ; ED=1.5ML
     Route: 050
     Dates: start: 20160129, end: 20160417

REACTIONS (9)
  - Cataract [Unknown]
  - Underdose [Unknown]
  - Incorrect route of drug administration [Recovered/Resolved]
  - Device alarm issue [Recovered/Resolved]
  - Wound [Unknown]
  - Device occlusion [Recovered/Resolved]
  - Weight decreased [Not Recovered/Not Resolved]
  - Stoma site hypergranulation [Not Recovered/Not Resolved]
  - Stoma site reaction [Unknown]

NARRATIVE: CASE EVENT DATE: 20160417
